FAERS Safety Report 10048157 (Version 3)
Quarter: 2014Q2

REPORT INFORMATION
  Report Type: Spontaneous
  Country: FR (occurrence: FR)
  Receive Date: 20140331
  Receipt Date: 20140505
  Transmission Date: 20141212
  Serious: No
  Sender: FDA-Public Use
  Company Number: FR-JNJFOC-20140314684

PATIENT
  Age: 86 Year
  Sex: Female

DRUGS (1)
  1. DUROGESIC [Suspect]
     Indication: PAIN
     Route: 062
     Dates: start: 20140314, end: 20140315

REACTIONS (3)
  - Product quality issue [Unknown]
  - Accidental overdose [Unknown]
  - Inappropriate schedule of drug administration [Unknown]
